FAERS Safety Report 10029647 (Version 1)
Quarter: 2014Q1

REPORT INFORMATION
  Report Type: Spontaneous
  Country: US (occurrence: None)
  Receive Date: 20140320
  Receipt Date: 20140320
  Transmission Date: 20141002
  Serious: Yes (Other)
  Sender: FDA-Public Use
  Company Number: None

PATIENT
  Age: 21 Year
  Sex: Female

DRUGS (1)
  1. CEREZYME [Suspect]
     Indication: GAUCHER^S DISEASE

REACTIONS (7)
  - Arthralgia [None]
  - Hip fracture [None]
  - Bone pain [None]
  - Bone disorder [None]
  - Spleen disorder [None]
  - Liver disorder [None]
  - Oedema [None]
